FAERS Safety Report 7447953-5 (Version None)
Quarter: 2011Q2

REPORT INFORMATION
  Report Type: 
  Country: None (occurrence: None)
  Receive Date: 20110429
  Receipt Date: 20110420
  Transmission Date: 20111010
  Serious: Yes (Hospitalization, Other)
  Sender: FDA-Public Use
  Company Number: AT-ABBOTT-11P-009-0720816-01

PATIENT
  Sex: Male
  Weight: 75 kg

DRUGS (5)
  1. HUMIRA [Suspect]
     Route: 058
     Dates: start: 20110225
  2. HUMIRA [Suspect]
     Route: 058
     Dates: start: 20110225
  3. PENTASA [Concomitant]
     Indication: CROHN'S DISEASE
     Dates: start: 20100722
  4. HUMIRA [Suspect]
     Indication: CROHN'S DISEASE
     Route: 058
     Dates: start: 20080430, end: 20101102
  5. AZATHIOPRINE [Concomitant]
     Indication: CROHN'S DISEASE
     Dosage: 11 YEARS

REACTIONS (1)
  - SEMINOMA [None]
